FAERS Safety Report 6072758-X (Version None)
Quarter: 2009Q1

REPORT INFORMATION
  Report Type: 
  Country: None (occurrence: None)
  Receive Date: 20090210
  Receipt Date: 20090202
  Transmission Date: 20090719
  Serious: Yes (Death, Hospitalization, Other)
  Sender: FDA-Public Use
  Company Number: US-ROXANE LABORATORIES, INC.-2009-RO-00101RO

PATIENT
  Age: 10 Year
  Sex: Male

DRUGS (19)
  1. METHOTREXATE [Suspect]
     Indication: BONE SARCOMA
  2. METHOTREXATE [Suspect]
  3. CISPLATIN [Suspect]
     Indication: BONE SARCOMA
  4. DOXORUBICIN HCL [Suspect]
     Indication: BONE SARCOMA
  5. IFOSFAMIDE [Suspect]
     Indication: BONE SARCOMA
  6. ETOPOSIDE [Suspect]
     Indication: BONE SARCOMA
  7. D5W WITH NAHCO3 [Suspect]
     Indication: PROPHYLAXIS AGAINST DEHYDRATION
  8. D5W WITH NAHCO3 [Suspect]
     Indication: HYPERKALAEMIA
     Route: 042
  9. D5W WITH NAHCO3 [Suspect]
  10. POTASSIUM CHLORIDE [Suspect]
     Indication: BLOOD POTASSIUM DECREASED
     Route: 042
  11. LEUCOVORIN CALCIUM [Suspect]
     Indication: NEPHROPATHY TOXIC
     Route: 042
  12. CALCIUM CHLORIDE [Suspect]
     Indication: HYPERKALAEMIA
  13. DEXTROSE 50% [Suspect]
     Indication: HYPERKALAEMIA
     Route: 042
  14. CARBOXYPEPTIDASE [Suspect]
     Indication: NEPHROPATHY TOXIC
  15. ACTIVATED CHARCOAL [Suspect]
     Indication: NEPHROPATHY TOXIC
  16. LASIX [Concomitant]
     Indication: PLEURAL EFFUSION
  17. OXYGEN [Concomitant]
     Indication: PLEURAL EFFUSION
  18. OXYGEN [Concomitant]
     Indication: HYPOXIA
  19. PALIFERMIN [Concomitant]
     Indication: PROPHYLAXIS
     Dosage: 1800MCG
     Route: 042

REACTIONS (7)
  - DEATH [None]
  - DRUG CLEARANCE DECREASED [None]
  - HYPERKALAEMIA [None]
  - NEPHROPATHY TOXIC [None]
  - OSTEOSARCOMA RECURRENT [None]
  - PLEURAL EFFUSION [None]
  - PYREXIA [None]
